FAERS Safety Report 9510541 (Version 2)
Quarter: 2013Q3

REPORT INFORMATION
  Report Type: Report from Study
  Country: AU (occurrence: AU)
  Receive Date: 20130909
  Receipt Date: 20130917
  Transmission Date: 20140515
  Serious: Yes (Other)
  Sender: FDA-Public Use
  Company Number: PHHY2013AU098795

PATIENT
  Age: 27 Year
  Sex: Female

DRUGS (3)
  1. CLOZARIL [Suspect]
     Indication: SCHIZOPHRENIA
     Dosage: 700 MG, DAILY
     Dates: start: 2002
  2. AMISULPRIDE [Concomitant]
     Dosage: 200 MG, BID
  3. FOLIC ACID [Concomitant]
     Indication: HIGH RISK PREGNANCY
     Dosage: 5 MG, DAILY

REACTIONS (7)
  - Blood prolactin increased [Unknown]
  - Myocarditis [Unknown]
  - Left ventricular dysfunction [Unknown]
  - Schizophrenia [Unknown]
  - Antipsychotic drug level decreased [Unknown]
  - Alanine aminotransferase increased [Unknown]
  - Neutrophilia [Unknown]
